FAERS Safety Report 15237646 (Version 3)
Quarter: 2018Q3

REPORT INFORMATION
  Report Type: Spontaneous
  Country: DE (occurrence: DE)
  Receive Date: 20180803
  Receipt Date: 20180910
  Transmission Date: 20181010
  Serious: Yes (Death, Life-Threatening, Hospitalization, Other)
  Sender: FDA-Public Use
  Company Number: PHHY2014DE185233

PATIENT
  Age: 73 Year
  Sex: Female
  Weight: 106 kg

DRUGS (47)
  1. OXALIPLATIN. [Suspect]
     Active Substance: OXALIPLATIN
     Indication: COLORECTAL CANCER METASTATIC
     Dosage: 170 MG, UNK
     Route: 042
  2. FOLINIC ACID [Suspect]
     Active Substance: LEUCOVORIN
     Indication: PRODUCT USED FOR UNKNOWN INDICATION
     Dosage: 800 MG, UNK
     Route: 042
     Dates: start: 20131008, end: 20131009
  3. FOLINIC ACID [Suspect]
     Active Substance: LEUCOVORIN
     Dosage: 800 MG, Q2W
     Route: 042
     Dates: start: 20140326, end: 20140327
  4. FOLINIC ACID [Suspect]
     Active Substance: LEUCOVORIN
     Dosage: 640 MG, UNK
     Route: 042
  5. 5?FU [Suspect]
     Active Substance: FLUOROURACIL
     Indication: COLORECTAL CANCER METASTATIC
     Dosage: 1280 MG BOLUS 1900 MG DRIP
     Route: 042
     Dates: start: 20131119, end: 20131120
  6. 5?FU [Suspect]
     Active Substance: FLUOROURACIL
     Dosage: 1 OT, Q2W (1600 MG BOLUS2400 MG DRIP)
     Route: 042
     Dates: start: 20140415, end: 20140415
  7. 5?FU [Suspect]
     Active Substance: FLUOROURACIL
     Dosage: 1 OT, Q2W (720 MG BOLUS 1800 MG DRIP)
     Route: 042
     Dates: start: 20140603, end: 20140604
  8. 5?FU [Suspect]
     Active Substance: FLUOROURACIL
     Dosage: 1 OT, Q2W (720 MG BOLUS1800 MG DRIP)
     Route: 042
     Dates: start: 20140701, end: 20140702
  9. 5?FU [Suspect]
     Active Substance: FLUOROURACIL
     Dosage: 1 OT, Q2W (720 MG BOLUS 1800 MG DRIP)
     Route: 042
  10. PANTOZOL [Concomitant]
     Active Substance: PANTOPRAZOLE SODIUM
     Indication: PROPHYLAXIS
     Dosage: 40 MG, QD
     Route: 048
  11. 5?FU [Suspect]
     Active Substance: FLUOROURACIL
     Dosage: 1280 MG BOLUS1900 MG DRIP
     Route: 042
  12. 5?FU [Suspect]
     Active Substance: FLUOROURACIL
     Dosage: 1 OT, Q2W (720 MG BOLUS 1800 MG DRIP)
     Route: 042
     Dates: start: 20140617, end: 20140618
  13. 5?FU [Suspect]
     Active Substance: FLUOROURACIL
     Dosage: 1 OT, Q2W (720 MG BOLUS 1800 MG DRIP)
     Route: 042
     Dates: start: 20140916, end: 20140917
  14. 5?FU [Suspect]
     Active Substance: FLUOROURACIL
     Dosage: 1 OT, 1280 MG BOLUS 1900 MG DRIP
     Route: 042
     Dates: start: 20140121, end: 20140122
  15. LONQUEX [Concomitant]
     Active Substance: LIPEGFILGRASTIM
     Indication: PROPHYLAXIS
     Dosage: UNK
     Route: 058
  16. OXALIPLATIN. [Suspect]
     Active Substance: OXALIPLATIN
     Dosage: 140 MG, UNK
     Route: 042
  17. FOLINIC ACID [Suspect]
     Active Substance: LEUCOVORIN
     Dosage: 800 MG, UNK
     Route: 042
     Dates: start: 20131029, end: 20131030
  18. GLANDOMED [Concomitant]
     Indication: MUCOSAL INFLAMMATION
     Dosage: UNK
     Route: 065
  19. RAMIPRIL. [Concomitant]
     Active Substance: RAMIPRIL
     Indication: HYPERTENSION
     Dosage: 2.5 MG, QD
     Route: 048
  20. OXALIPLATIN. [Suspect]
     Active Substance: OXALIPLATIN
     Dosage: 140 MG, Q2W
     Route: 042
     Dates: start: 20140326, end: 20140327
  21. FOLINIC ACID [Suspect]
     Active Substance: LEUCOVORIN
     Dosage: 720 MG, UNK
     Route: 042
  22. 5?FU [Suspect]
     Active Substance: FLUOROURACIL
     Dosage: 1280 MG BOLUS1900 MG DRIP
     Route: 042
     Dates: start: 20140211, end: 20140212
  23. 5?FU [Suspect]
     Active Substance: FLUOROURACIL
     Dosage: 1 OT, Q2W (1600 MG BOLUS 2400 MG DRIP)
     Route: 042
     Dates: start: 20140326, end: 20140327
  24. 5?FU [Suspect]
     Active Substance: FLUOROURACIL
     Dosage: 1 OT, Q2W (720 MG BOLUS 1800 MG DRIP)
     Route: 042
     Dates: start: 20140715, end: 20140716
  25. OPIUM TINCTURE [Concomitant]
     Active Substance: MORPHINE
     Indication: PRODUCT USED FOR UNKNOWN INDICATION
     Dosage: UNK
     Route: 048
     Dates: start: 20140227
  26. OXALIPLATIN. [Suspect]
     Active Substance: OXALIPLATIN
     Dosage: 140 MG, UNK
     Route: 042
  27. OXALIPLATIN. [Suspect]
     Active Substance: OXALIPLATIN
     Dosage: 1 OT, Q2W
     Route: 042
     Dates: start: 20140121, end: 20140121
  28. FOLINIC ACID [Suspect]
     Active Substance: LEUCOVORIN
     Dosage: 640 MG, UNK
     Route: 042
     Dates: start: 20140121, end: 20140122
  29. FOLINIC ACID [Suspect]
     Active Substance: LEUCOVORIN
     Dosage: 720 MG, UNK
     Route: 042
  30. 5?FU [Suspect]
     Active Substance: FLUOROURACIL
     Dosage: 1280 MG BOLUS1900 MG DRIP
     Route: 042
     Dates: start: 20131210, end: 20131211
  31. 5?FU [Suspect]
     Active Substance: FLUOROURACIL
     Dosage: 1600 MG BOLUS2400 MG DRIP
     Route: 042
  32. AVASTIN [Suspect]
     Active Substance: BEVACIZUMAB
     Indication: COLORECTAL CANCER METASTATIC
     Dosage: 530 MG, Q2W
     Route: 042
     Dates: start: 20131008, end: 20131008
  33. FOLINIC ACID [Suspect]
     Active Substance: LEUCOVORIN
     Dosage: 720 MG, UNK
     Route: 042
     Dates: start: 20140916, end: 20140917
  34. 5?FU [Suspect]
     Active Substance: FLUOROURACIL
     Dosage: 1 OT, Q2W (720 MG BOLUS  1800 MG DRIP)
     Route: 042
     Dates: start: 20140930, end: 20141001
  35. NOVAMINSULFON [Concomitant]
     Active Substance: METAMIZOLE
     Indication: PAIN
     Dosage: (UNIT DOSE: 30 [DRP] DAILY DOSE: 90 GTT DROP(S) EVERY DAYS)90 GTT, QD
     Route: 048
  36. NEULASTA [Concomitant]
     Active Substance: PEGFILGRASTIM
     Indication: PROPHYLAXIS
     Dosage: 6 MG, QD
     Route: 058
     Dates: start: 20140605, end: 20140703
  37. SODIUM CHLORIDE. [Concomitant]
     Active Substance: SODIUM CHLORIDE
     Indication: BLOOD CREATININE INCREASED
     Dosage: UNK
     Route: 042
  38. FOLINIC ACID [Suspect]
     Active Substance: LEUCOVORIN
     Dosage: 640 MG, UNK
     Route: 042
     Dates: start: 20140211, end: 20140212
  39. FOLINIC ACID [Suspect]
     Active Substance: LEUCOVORIN
     Dosage: 720 MG, UNK
     Route: 042
  40. FOLINIC ACID [Suspect]
     Active Substance: LEUCOVORIN
     Dosage: 800 MG, UNK
     Route: 042
  41. 5?FU [Suspect]
     Active Substance: FLUOROURACIL
     Dosage: 1 OT, Q2W (720 MG BOLUS 1800 MG DRIP)
     Route: 042
     Dates: start: 20140822, end: 20140823
  42. L?THYROXIN [Concomitant]
     Active Substance: LEVOTHYROXINE SODIUM
     Indication: HYPOTHYROIDISM
     Dosage: 50 UG, QD
     Route: 048
  43. URO?TABLINEN [Concomitant]
     Indication: URINARY TRACT INFECTION
     Dosage: 50 MG, QD
     Route: 048
  44. FOLINIC ACID [Suspect]
     Active Substance: LEUCOVORIN
     Dosage: 720 MG, UNK
     Route: 042
     Dates: start: 20140211, end: 20140212
  45. FOLINIC ACID [Suspect]
     Active Substance: LEUCOVORIN
     Dosage: 720 MG, UNK
     Route: 042
  46. FOLINIC ACID [Suspect]
     Active Substance: LEUCOVORIN
     Dosage: 640 MG, UNK
     Route: 042
  47. AVASTIN [Suspect]
     Active Substance: BEVACIZUMAB
     Dosage: 420 MG, Q2W
     Route: 042
     Dates: start: 20131210, end: 20131210

REACTIONS (7)
  - Neutropenia [Recovered/Resolved]
  - Febrile neutropenia [Recovered/Resolved]
  - Pulmonary embolism [Recovered/Resolved]
  - Anaemia [Recovered/Resolved]
  - Malignant neoplasm progression [Fatal]
  - Neutropenia [Recovered/Resolved]
  - Diarrhoea [Recovered/Resolved]

NARRATIVE: CASE EVENT DATE: 20131030
